FAERS Safety Report 25460563 (Version 1)
Quarter: 2025Q2

REPORT INFORMATION
  Report Type: Spontaneous
  Country: JP (occurrence: JP)
  Receive Date: 20250620
  Receipt Date: 20250620
  Transmission Date: 20250716
  Serious: Yes (Hospitalization, Other)
  Sender: NOVARTIS
  Company Number: JP-002147023-NVSJ2025JP006308

PATIENT
  Age: 5 Year
  Sex: Female

DRUGS (1)
  1. CYCLOSPORINE [Suspect]
     Active Substance: CYCLOSPORINE
     Indication: Henoch-Schonlein purpura
     Route: 065

REACTIONS (5)
  - Posterior reversible encephalopathy syndrome [Recovering/Resolving]
  - Altered state of consciousness [Recovering/Resolving]
  - Clonic convulsion [Unknown]
  - Aphasia [Recovering/Resolving]
  - Off label use [Unknown]
